FAERS Safety Report 20712956 (Version 1)
Quarter: 2022Q2

REPORT INFORMATION
  Report Type: Spontaneous
  Country: FR (occurrence: FR)
  Receive Date: 20220415
  Receipt Date: 20220415
  Transmission Date: 20220721
  Serious: Yes (Death)
  Sender: FDA-Public Use
  Company Number: None

PATIENT
  Age: 69 Year
  Sex: Male
  Weight: 108 kg

DRUGS (9)
  1. DULOXETINE [Interacting]
     Active Substance: DULOXETINE
     Indication: Product used for unknown indication
     Dosage: UNIT DOSE: 30 MG, FREQUENCY TIME 1 DAY, THERAPY START DATE : ASKU
     Route: 048
     Dates: end: 20220313
  2. XARELTO [Interacting]
     Active Substance: RIVAROXABAN
     Indication: Atrial fibrillation
     Dosage: UNIT DOSE: 20 MG, FREQUENCY TIME 1 DAY, THERAPY START DATE : ASKU
     Route: 048
     Dates: end: 20220313
  3. BROMAZEPAM [Concomitant]
     Active Substance: BROMAZEPAM
     Dosage: UNIT DOSE: 3 MG, FREQUENCY TIME 1 DAY, THERAPY START DATE : ASKU
     Route: 048
     Dates: end: 20220313
  4. ATORVASTATIN [Concomitant]
     Active Substance: ATORVASTATIN
     Dosage: UNIT DOSE: 20 MG, THERAPY START DATE : ASKU, FREQUENCY TIME 1 DAY
     Route: 048
  5. BISOPROLOL [Concomitant]
     Active Substance: BISOPROLOL
     Dosage: BISOPROLOL (FUMARATE ACIDE DE), UNIT DOSE: 10 MG, THERAPY START DATE : ASKU, FREQUENCY TIME 1 DAY
     Route: 048
  6. FUROSEMIDE [Concomitant]
     Active Substance: FUROSEMIDE
     Dosage: UNIT DOSE: 160 MG, FREQUENCY TIME 1 DAY, THERAPY START DATE : ASKU
     Route: 048
  7. POTASSIUM CHLORIDE [Concomitant]
     Active Substance: POTASSIUM CHLORIDE
     Dosage: FREQUENCY TIME :1  DAY, UNIT DOSE: 1200 MG, THERAPY START DATE : ASKU
     Route: 048
     Dates: end: 20220313
  8. ALBUTEROL [Concomitant]
     Active Substance: ALBUTEROL
     Dosage: UNIT DOSE: 20 MG, FREQUENCY TIME 1 DAY, THERAPY START DATE : ASKU
     Route: 048
  9. IPRATROPIUM BROMIDE [Concomitant]
     Active Substance: IPRATROPIUM BROMIDE
     Dosage: IPRATROPIUM (BROMURE D), UNIT DOSE: 2 MG, FREQUENCY TIME 1 DAY, THERAPY START DATE : ASKU
     Route: 048

REACTIONS (2)
  - Haemorrhagic stroke [Fatal]
  - Drug interaction [Fatal]

NARRATIVE: CASE EVENT DATE: 20220313
